FAERS Safety Report 23971840 (Version 4)
Quarter: 2025Q3

REPORT INFORMATION
  Report Type: Spontaneous
  Country: US (occurrence: US)
  Receive Date: 20240613
  Receipt Date: 20250909
  Transmission Date: 20251020
  Serious: No
  Sender: PFIZER
  Company Number: US-PFIZER INC-PV202400076074

PATIENT
  Age: 72 Year
  Sex: Female

DRUGS (1)
  1. XELJANZ XR [Suspect]
     Active Substance: TOFACITINIB CITRATE
     Dosage: TAKE 1 TABLET BY MOUTH EVERY DAY AS DIRECTED BY PHYSICIAN
     Route: 048

REACTIONS (7)
  - Pain [Unknown]
  - Musculoskeletal stiffness [Unknown]
  - Computerised tomogram heart abnormal [Unknown]
  - Movement disorder [Unknown]
  - Ocular discomfort [Unknown]
  - Tremor [Not Recovered/Not Resolved]
  - Intentional product misuse [Unknown]
